FAERS Safety Report 12980171 (Version 1)
Quarter: 2016Q4

REPORT INFORMATION
  Report Type: Spontaneous
  Country: US (occurrence: US)
  Receive Date: 20161128
  Receipt Date: 20161128
  Transmission Date: 20170207
  Serious: Yes (Hospitalization)
  Sender: FDA-Public Use
  Company Number: PHHY2016US161569

PATIENT
  Age: 57 Year
  Sex: Male

DRUGS (1)
  1. ENTRESTO [Suspect]
     Active Substance: SACUBITRIL\VALSARTAN
     Indication: PRODUCT USED FOR UNKNOWN INDICATION
     Dosage: 200 MG, BID
     Route: 048
     Dates: start: 20160301

REACTIONS (3)
  - Dizziness postural [Recovering/Resolving]
  - Vertebral artery occlusion [Recovering/Resolving]
  - Cerebral artery occlusion [Recovering/Resolving]

NARRATIVE: CASE EVENT DATE: 20161016
